FAERS Safety Report 8461728-X (Version None)
Quarter: 2012Q2

REPORT INFORMATION
  Report Type: 
  Country: None (occurrence: None)
  Receive Date: 20120625
  Receipt Date: 20120612
  Transmission Date: 20120825
  Serious: No
  Sender: FDA-Public Use
  Company Number: JP-UCBSA-058851

PATIENT
  Sex: Female

DRUGS (7)
  1. FERROUS FUMARATE [Suspect]
     Route: 048
  2. CALCIUM CARBONATE [Suspect]
     Route: 048
  3. KEPPRA [Suspect]
     Indication: EPILEPSY
     Route: 048
     Dates: start: 20120329, end: 20120531
  4. DIART [Suspect]
     Route: 048
  5. DEPAKENE [Suspect]
     Route: 048
     Dates: end: 20120531
  6. ALLOPURINOL [Suspect]
     Route: 048
  7. ALFAROL [Suspect]
     Route: 048

REACTIONS (1)
  - PLATELET COUNT DECREASED [None]
